FAERS Safety Report 7593501-9 (Version None)
Quarter: 2011Q2

REPORT INFORMATION
  Report Type: 
  Country: None (occurrence: None)
  Receive Date: 20110628
  Receipt Date: 20110617
  Transmission Date: 20111010
  Serious: Yes (Hospitalization, Disabling, Other)
  Sender: FDA-Public Use
  Company Number: ABR_00163_2011

PATIENT
  Age: 66 Year
  Sex: Male

DRUGS (8)
  1. AMITRIPTYLINE HCL [Concomitant]
  2. ATENOLOL [Concomitant]
  3. DIHYDROCODEINE BITARTRATE INJ [Concomitant]
  4. ERYTHROMYCIN [Suspect]
     Indication: WOUND INFECTION
     Dosage: 1000 MG (250 MG 4 IN 1 D), ORAL
     Route: 048
     Dates: start: 20110524, end: 20110602
  5. ALLOPURINOL [Concomitant]
  6. PREDNISOLONE [Concomitant]
  7. LEFLUNOMIDE [Suspect]
     Indication: RHEUMATOID ARTHRITIS
     Dosage: 10 MG (10 MG, 1 IN 1 D), ORAL
     Route: 048
     Dates: start: 20110424, end: 20110602
  8. METHOTREXATE [Suspect]
     Indication: RHEUMATOID ARTHRITIS
     Dosage: 20 MG, 1 IN 1 WK, ORAL
     Route: 048
     Dates: end: 20110516

REACTIONS (4)
  - WHITE BLOOD CELL COUNT DECREASED [None]
  - RENAL FAILURE ACUTE [None]
  - VASCULITIS [None]
  - HEPATIC FAILURE [None]
